FAERS Safety Report 8056206-6 (Version None)
Quarter: 2012Q1

REPORT INFORMATION
  Report Type: 
  Country: None (occurrence: None)
  Receive Date: 20120119
  Receipt Date: 20120110
  Transmission Date: 20120608
  Serious: Yes (Hospitalization)
  Sender: FDA-Public Use
  Company Number: US-BAYER-2011-038948

PATIENT
  Age: 22 Year
  Sex: Female
  Weight: 76 kg

DRUGS (2)
  1. YASMIN [Suspect]
     Dosage: UNK
     Dates: start: 20041001, end: 20090401
  2. YAZ [Suspect]
     Dosage: UNK
     Dates: start: 20080301, end: 20090101

REACTIONS (9)
  - FEAR [None]
  - CHOLELITHIASIS [None]
  - ANXIETY [None]
  - GALLBLADDER DISORDER [None]
  - INJURY [None]
  - CHOLECYSTITIS CHRONIC [None]
  - PAIN [None]
  - DEEP VEIN THROMBOSIS [None]
  - ANHEDONIA [None]
